FAERS Safety Report 8462637-2 (Version None)
Quarter: 2012Q2

REPORT INFORMATION
  Report Type: 
  Country: None (occurrence: None)
  Receive Date: 20120619
  Receipt Date: 20120619
  Transmission Date: 20120825
  Serious: Yes (Disabling)
  Sender: FDA-Public Use
  Company Number: None

PATIENT
  Age: 60 Year
  Sex: Female
  Weight: 56.6996 kg

DRUGS (1)
  1. OMEPRAZOLE [Suspect]
     Indication: GASTROOESOPHAGEAL REFLUX DISEASE
     Dosage: 20MG TWICE PER DAY PO
     Route: 048
     Dates: start: 20120416, end: 20120530

REACTIONS (9)
  - PAIN [None]
  - TOXIC NODULAR GOITRE [None]
  - HYPOGLYCAEMIA [None]
  - PAIN OF SKIN [None]
  - THYROIDITIS [None]
  - PRESYNCOPE [None]
  - FEAR [None]
  - AUTOIMMUNE DISORDER [None]
  - DRY SKIN [None]
